FAERS Safety Report 22521472 (Version 1)
Quarter: 2023Q2

REPORT INFORMATION
  Report Type: Spontaneous
  Country: US (occurrence: US)
  Receive Date: 20230605
  Receipt Date: 20230605
  Transmission Date: 20230722
  Serious: No
  Sender: FDA-Public Use
  Company Number: US-009507513-2305USA008957

PATIENT
  Age: 66 Year
  Sex: Female

DRUGS (1)
  1. INVANZ [Suspect]
     Active Substance: ERTAPENEM SODIUM
     Indication: Bacterial infection
     Dosage: 1000 MILLIGRAM, QD, FOR 8 WEEKS
     Route: 042

REACTIONS (1)
  - Off label use [Unknown]
